FAERS Safety Report 20351424 (Version 1)
Quarter: 2022Q1

REPORT INFORMATION
  Report Type: Spontaneous
  Country: US (occurrence: None)
  Receive Date: 20220119
  Receipt Date: 20220119
  Transmission Date: 20220423
  Serious: Yes (Other)
  Sender: FDA-Public Use
  Company Number: None

PATIENT
  Age: 74 Year
  Sex: Male

DRUGS (9)
  1. EVEROLIMUS [Suspect]
     Active Substance: EVEROLIMUS
     Indication: Renal cell carcinoma
     Dosage: FREQUENCY : DAILY;?
     Route: 048
     Dates: start: 20211225
  2. FENOFIBRATE [Concomitant]
  3. METOPROLOL [Concomitant]
  4. SIMVASTATIN [Concomitant]
  5. TERAZOSIN [Concomitant]
  6. MARINOL [Concomitant]
     Active Substance: DRONABINOL
  7. HYDROCHLOROTHIAZIDE [Concomitant]
  8. VITAMIN D3 [Concomitant]
  9. FISH OIL [Concomitant]

REACTIONS (3)
  - Stomatitis [None]
  - Eating disorder [None]
  - Speech disorder [None]
